FAERS Safety Report 23131354 (Version 1)
Quarter: 2023Q4

REPORT INFORMATION
  Report Type: Spontaneous
  Country: SA (occurrence: SA)
  Receive Date: 20231031
  Receipt Date: 20231031
  Transmission Date: 20240109
  Serious: Yes (Other)
  Sender: FDA-Public Use
  Company Number: SA-EPICPHARMA-SA-2023EPCLIT01562

PATIENT
  Age: 82 Year
  Sex: Female

DRUGS (5)
  1. CLOBETASOL PROPIONATE [Suspect]
     Active Substance: CLOBETASOL PROPIONATE
     Indication: Pruritus
     Dosage: 0.05%
     Route: 061
  2. HYDROCORTISONE BUTYRATE [Suspect]
     Active Substance: HYDROCORTISONE BUTYRATE
     Indication: Pruritus
     Dosage: 0.1%
     Route: 061
  3. HYDROCORTISONE BUTYRATE [Suspect]
     Active Substance: HYDROCORTISONE BUTYRATE
     Dosage: 0.1%
     Route: 061
  4. MICONAZOLE NITRATE [Suspect]
     Active Substance: MICONAZOLE NITRATE
     Indication: Pruritus
     Dosage: 2%
     Route: 061
  5. MOMETASONE FUROATE [Suspect]
     Active Substance: MOMETASONE FUROATE
     Indication: Pruritus
     Route: 065

REACTIONS (2)
  - Adrenal insufficiency [Recovering/Resolving]
  - Prescription drug used without a prescription [Unknown]
